FAERS Safety Report 22024440 (Version 1)
Quarter: 2023Q1

REPORT INFORMATION
  Report Type: Spontaneous
  Country: US (occurrence: None)
  Receive Date: 20230223
  Receipt Date: 20230223
  Transmission Date: 20230417
  Serious: No
  Sender: FDA-Public Use
  Company Number: US-ROCHE-3046118

PATIENT
  Sex: Female

DRUGS (1)
  1. XOLAIR [Suspect]
     Active Substance: OMALIZUMAB
     Indication: Idiopathic urticaria
     Dosage: EVERY 4 WEEKS DIVIDED INTO 2 DOSES AND GIVEN AT TWO DIFFERENT INJECTION SITES
     Route: 058
     Dates: start: 20210516

REACTIONS (2)
  - Drug ineffective [Unknown]
  - No adverse event [Unknown]
